FAERS Safety Report 13427872 (Version 2)
Quarter: 2017Q2

REPORT INFORMATION
  Report Type: Spontaneous
  Country: DE (occurrence: DE)
  Receive Date: 20170411
  Receipt Date: 20170613
  Transmission Date: 20170830
  Serious: Yes (Death)
  Sender: FDA-Public Use
  Company Number: DE-ASTELLAS-2016US048689

PATIENT
  Age: 8 Year
  Sex: Male
  Weight: 22 kg

DRUGS (11)
  1. ISAVUCONAZOLE [Suspect]
     Active Substance: ISAVUCONAZOLE
     Indication: MUCORMYCOSIS
     Dosage: 125 MG (3X 125MG (5.68 MG/KG)), THRICE DAILY
     Route: 042
     Dates: start: 20161123, end: 20161124
  2. ISAVUCONAZOLE [Suspect]
     Active Substance: ISAVUCONAZOLE
     Dosage: 170 MG (1X170 MG (11.3MG/KG), ONCE DAILY
     Route: 042
     Dates: start: 20161203, end: 20161207
  3. ISAVUCONAZOLE [Suspect]
     Active Substance: ISAVUCONAZOLE
     Dosage: 300 MG (300 MG (13.7 MG/KG)), ONCE DAILY
     Route: 042
     Dates: start: 20161228, end: 20170115
  4. ISAVUCONAZOLE [Suspect]
     Active Substance: ISAVUCONAZOLE
     Dosage: 150 MG (1X 150MG (6.8 MG/KG), ONCE DAILY
     Route: 042
     Dates: start: 20161125, end: 20161202
  5. MICAFUNGIN [Concomitant]
     Active Substance: MICAFUNGIN
     Indication: MUCORMYCOSIS
     Dosage: UNK, UNKNOWN FREQ.
     Route: 065
     Dates: start: 20161109, end: 20161117
  6. POSACONAZOLE [Concomitant]
     Active Substance: POSACONAZOLE
     Indication: MUCORMYCOSIS
     Dosage: UNK, UNKNOWN FREQ.
     Route: 065
     Dates: start: 20161118, end: 20161122
  7. ISAVUCONAZOLE [Suspect]
     Active Substance: ISAVUCONAZOLE
     Dosage: 200 MG (200 MG (9.2 MG/KG)), ONCE DAILY
     Route: 042
     Dates: start: 20161223, end: 20161227
  8. ISAVUCONAZOLE [Suspect]
     Active Substance: ISAVUCONAZOLE
     Dosage: 200 MG (200 MG (9.2 MG/KG)), ONCE DAILY
     Route: 042
     Dates: start: 20161208
  9. VORICONAZOLE. [Concomitant]
     Active Substance: VORICONAZOLE
     Indication: MUCORMYCOSIS
     Dosage: UNK, UNKNOWN FREQ.
     Route: 065
     Dates: start: 20161012, end: 20161117
  10. ISAVUCONAZOLE [Suspect]
     Active Substance: ISAVUCONAZOLE
     Dosage: UNK UNK, UNKNOWN FREQ.
     Route: 048
     Dates: start: 20161221, end: 20161222
  11. AMBISOME [Concomitant]
     Active Substance: AMPHOTERICIN B
     Indication: MUCORMYCOSIS
     Dosage: UNK, UNKNOWN FREQ.
     Route: 042
     Dates: start: 20161118, end: 20170115

REACTIONS (3)
  - Disease progression [Fatal]
  - Rash [Recovered/Resolved]
  - Off label use [Unknown]

NARRATIVE: CASE EVENT DATE: 20161123
